FAERS Safety Report 9998332 (Version 1)
Quarter: 2014Q1

REPORT INFORMATION
  Report Type: Spontaneous
  Country: CN (occurrence: CN)
  Receive Date: 20140312
  Receipt Date: 20140312
  Transmission Date: 20141002
  Serious: Yes (Death, Hospitalization)
  Sender: FDA-Public Use
  Company Number: PHHY2014CN026558

PATIENT
  Age: 56 Year
  Sex: Female

DRUGS (2)
  1. PREDNISONE [Suspect]
     Indication: IMMUNOSUPPRESSION
     Dosage: 30-40 MG, UNK
  2. CYCLOPHOSPHAMIDE [Suspect]
     Indication: IMMUNOSUPPRESSION

REACTIONS (8)
  - Listeriosis [Fatal]
  - Pyrexia [Fatal]
  - Fatigue [Fatal]
  - Oedema [Fatal]
  - Jaundice [Fatal]
  - Multi-organ failure [Unknown]
  - Pneumonia [Unknown]
  - Bacterial sepsis [Unknown]
